FAERS Safety Report 19724857 (Version 2)
Quarter: 2021Q3

REPORT INFORMATION
  Report Type: Spontaneous
  Country: CN (occurrence: CN)
  Receive Date: 20210820
  Receipt Date: 20210825
  Transmission Date: 20211014
  Serious: Yes (Hospitalization, Other)
  Sender: FDA-Public Use
  Company Number: CN-BAUSCH-BL-2021-027814

PATIENT
  Age: 14 Year
  Sex: Female

DRUGS (1)
  1. TROPICAMIDE EYE DROPS [Suspect]
     Active Substance: TROPICAMIDE
     Indication: MYDRIASIS
     Route: 047
     Dates: start: 20210810, end: 20210810

REACTIONS (2)
  - Shock [Recovered/Resolved]
  - Arrhythmia [Unknown]

NARRATIVE: CASE EVENT DATE: 20210810
